FAERS Safety Report 20878154 (Version 3)
Quarter: 2022Q3

REPORT INFORMATION
  Report Type: Spontaneous
  Country: US (occurrence: US)
  Receive Date: 20220526
  Receipt Date: 20220706
  Transmission Date: 20221027
  Serious: No
  Sender: FDA-Public Use
  Company Number: US-PFIZER INC-202200764233

PATIENT
  Age: 60 Year
  Sex: Female

DRUGS (1)
  1. IBRANCE [Suspect]
     Active Substance: PALBOCICLIB
     Dosage: UNK

REACTIONS (6)
  - Fatigue [Unknown]
  - Alopecia [Unknown]
  - Dry skin [Unknown]
  - Rash [Unknown]
  - Dry mouth [Unknown]
  - Chest discomfort [Unknown]
